FAERS Safety Report 16323725 (Version 5)
Quarter: 2019Q2

REPORT INFORMATION
  Report Type: Report from Study
  Country: AT (occurrence: AT)
  Receive Date: 20190517
  Receipt Date: 20190625
  Transmission Date: 20190711
  Serious: Yes (Hospitalization, Other)
  Sender: FDA-Public Use
  Company Number: AT-ROCHE-2300959

PATIENT
  Age: 53 Year
  Sex: Female
  Weight: 53 kg

DRUGS (30)
  1. GABAPENTIN. [Suspect]
     Active Substance: GABAPENTIN
     Indication: PAIN
     Route: 048
     Dates: start: 20190501
  2. MOLAXOLE [Suspect]
     Active Substance: POLYETHYLENE GLYCOL 3350\POTASSIUM CHLORIDE\SODIUM BICARBONATE\SODIUM CHLORIDE
     Indication: CONSTIPATION
     Route: 048
  3. HYDAL [Suspect]
     Active Substance: HYDROMORPHONE HYDROCHLORIDE
     Indication: PAIN
     Dosage: WHEN NEEDED, UP TO 6/DAY
     Route: 048
     Dates: end: 20190424
  4. ZYPREXA [Suspect]
     Active Substance: OLANZAPINE
     Indication: MANIA
     Route: 048
     Dates: start: 20190410, end: 20190424
  5. ZELBORAF [Suspect]
     Active Substance: VEMURAFENIB
     Indication: METASTATIC MALIGNANT MELANOMA
     Dosage: 4-0-4
     Route: 048
     Dates: start: 20190327, end: 2019
  6. ZELBORAF [Suspect]
     Active Substance: VEMURAFENIB
     Dosage: 3-0-3
     Route: 048
     Dates: start: 20190607
  7. COTELLIC [Suspect]
     Active Substance: COBIMETINIB
     Dosage: 3-0-0
     Route: 048
     Dates: start: 20190407
  8. ZOFRAN [Suspect]
     Active Substance: ONDANSETRON HYDROCHLORIDE
     Indication: NAUSEA
     Route: 048
     Dates: start: 20190409, end: 20190409
  9. FORTECORTIN [DEXAMETHASONE] [Suspect]
     Active Substance: DEXAMETHASONE
     Indication: PROPHYLAXIS
     Route: 048
     Dates: start: 20190408, end: 20190425
  10. DRONABINOL. [Suspect]
     Active Substance: DRONABINOL
     Dosage: 3-3-4, DROPS
     Route: 048
     Dates: start: 20190410, end: 20190410
  11. ZELBORAF [Suspect]
     Active Substance: VEMURAFENIB
     Dosage: 4-0-4
     Route: 048
     Dates: start: 20190407
  12. HYDAL [Suspect]
     Active Substance: HYDROMORPHONE HYDROCHLORIDE
     Route: 048
     Dates: start: 20190410, end: 20190424
  13. PRAXITEN [Suspect]
     Active Substance: OXAZEPAM
     Indication: INSOMNIA
     Dosage: 1.05 WHEN NEEDED
     Route: 048
     Dates: start: 20190410, end: 20190417
  14. FORTECORTIN [DEXAMETHASONE] [Suspect]
     Active Substance: DEXAMETHASONE
     Route: 048
     Dates: start: 20190503, end: 20190504
  15. DUROTIV [Suspect]
     Active Substance: ESOMEPRAZOLE
     Indication: PRODUCT USED FOR UNKNOWN INDICATION
     Route: 048
     Dates: start: 20190410
  16. ATORVASTATIN [Concomitant]
     Active Substance: ATORVASTATIN
     Indication: HYPERLIPIDAEMIA
     Dosage: 0-0-1
     Route: 048
     Dates: start: 20190528
  17. PASPERTIN [METOCLOPRAMIDE HYDROCHLORIDE] [Suspect]
     Active Substance: METOCLOPRAMIDE HYDROCHLORIDE
     Indication: NAUSEA
     Route: 048
     Dates: end: 20190409
  18. PASPERTIN [METOCLOPRAMIDE HYDROCHLORIDE] [Suspect]
     Active Substance: METOCLOPRAMIDE HYDROCHLORIDE
     Route: 048
     Dates: start: 20190425, end: 20190502
  19. DRONABINOL. [Suspect]
     Active Substance: DRONABINOL
     Indication: PAIN
     Dosage: DROPS
     Route: 048
     Dates: start: 20190409, end: 20190409
  20. VERTIROSAN (AUSTRIA) [Suspect]
     Active Substance: DIMENHYDRINATE
     Indication: NAUSEA
     Dosage: 1-1-1
     Route: 048
     Dates: end: 20190424
  21. CALCIDURAN [Suspect]
     Active Substance: ASCORBIC ACID\CALCIUM PHOSPHATE\CHOLECALCIFEROL\CITRIC ACID MONOHYDRATE
     Indication: PRODUCT USED FOR UNKNOWN INDICATION
     Dosage: 800 IE (VITAMIN D3)
     Route: 048
     Dates: start: 201905, end: 201905
  22. HYDAL [Suspect]
     Active Substance: HYDROMORPHONE HYDROCHLORIDE
     Dosage: 1-0-0
     Route: 048
     Dates: start: 20190425
  23. PASPERTIN [METOCLOPRAMIDE HYDROCHLORIDE] [Suspect]
     Active Substance: METOCLOPRAMIDE HYDROCHLORIDE
     Indication: VOMITING
     Route: 048
     Dates: start: 20190410, end: 20190424
  24. COTELLIC [Suspect]
     Active Substance: COBIMETINIB
     Indication: METASTATIC MALIGNANT MELANOMA
     Dosage: 3-0-0
     Route: 048
     Dates: start: 20190327, end: 2019
  25. COTELLIC [Suspect]
     Active Substance: COBIMETINIB
     Dosage: 2-0-0
     Route: 048
     Dates: start: 20190607
  26. HYDAL [Suspect]
     Active Substance: HYDROMORPHONE HYDROCHLORIDE
     Indication: PAIN
     Route: 048
     Dates: start: 20190327, end: 20190409
  27. PRAXITEN [Suspect]
     Active Substance: OXAZEPAM
     Indication: ANXIETY
     Dosage: 00-1/2
     Route: 048
     Dates: start: 20190410, end: 20190417
  28. PRAXITEN [Suspect]
     Active Substance: OXAZEPAM
     Dosage: 0.5 TABLET IF NEEDED
     Route: 048
  29. GABAPENTIN. [Suspect]
     Active Substance: GABAPENTIN
     Route: 048
     Dates: start: 20190502
  30. FORTECORTIN [DEXAMETHASONE] [Suspect]
     Active Substance: DEXAMETHASONE
     Route: 048
     Dates: start: 20190426, end: 20190502

REACTIONS (32)
  - Hypertensive crisis [Recovered/Resolved]
  - Nausea [Recovered/Resolved]
  - Vomiting [Recovered/Resolved]
  - Anxiety [Recovered/Resolved]
  - Renal function test abnormal [Recovering/Resolving]
  - Nodule [Recovering/Resolving]
  - Anxiety [Recovered/Resolved]
  - Fatigue [Recovered/Resolved]
  - Abdominal pain upper [Recovered/Resolved]
  - Flatulence [Recovered/Resolved]
  - Vomiting [Recovering/Resolving]
  - Alopecia [Not Recovered/Not Resolved]
  - General physical health deterioration [Recovered/Resolved]
  - Diarrhoea [Recovered/Resolved]
  - Liver function test abnormal [Recovering/Resolving]
  - Hyperlipidaemia [Not Recovered/Not Resolved]
  - Hypokalaemia [Recovered/Resolved]
  - Headache [Recovered/Resolved]
  - Dry mouth [Recovered/Resolved]
  - Feeling hot [Recovered/Resolved]
  - Laboratory test abnormal [Recovering/Resolving]
  - Vertigo [Recovered/Resolved]
  - Decreased appetite [Recovered/Resolved]
  - Oedema [Recovering/Resolving]
  - Constipation [Recovered/Resolved]
  - Headache [Recovering/Resolving]
  - Rash [Recovered/Resolved]
  - Defaecation disorder [Recovered/Resolved]
  - Discomfort [Recovered/Resolved]
  - Spinal pain [Recovered/Resolved]
  - Abdominal pain upper [Recovered/Resolved]
  - Hypertonia [Not Recovered/Not Resolved]

NARRATIVE: CASE EVENT DATE: 20190327
